FAERS Safety Report 25367343 (Version 1)
Quarter: 2025Q2

REPORT INFORMATION
  Report Type: Spontaneous
  Country: GB (occurrence: GB)
  Receive Date: 20250528
  Receipt Date: 20250528
  Transmission Date: 20250716
  Serious: Yes (Life-Threatening, Hospitalization, Other)
  Sender: STRIDES
  Company Number: GB-STRIDES ARCOLAB LIMITED-2025SP006356

PATIENT
  Age: 2 Day
  Sex: Male
  Weight: 2 kg

DRUGS (6)
  1. CINACALCET [Suspect]
     Active Substance: CINACALCET
     Indication: Product used for unknown indication
     Route: 064
  2. CINACALCET [Suspect]
     Active Substance: CINACALCET
     Route: 063
  3. TACROLIMUS [Suspect]
     Active Substance: TACROLIMUS
     Indication: Product used for unknown indication
     Route: 064
  4. TACROLIMUS [Suspect]
     Active Substance: TACROLIMUS
     Route: 063
  5. LABETALOL [Suspect]
     Active Substance: LABETALOL
     Indication: Product used for unknown indication
     Route: 064
  6. LABETALOL [Suspect]
     Active Substance: LABETALOL
     Route: 063

REACTIONS (6)
  - Low birth weight baby [Unknown]
  - Premature baby [Unknown]
  - Hypomagnesaemia [Recovered/Resolved]
  - Hypocalcaemia [Recovered/Resolved]
  - Exposure via breast milk [Unknown]
  - Foetal exposure during delivery [Unknown]
